FAERS Safety Report 14232479 (Version 5)
Quarter: 2018Q1

REPORT INFORMATION
  Report Type: Spontaneous
  Country: AT (occurrence: AT)
  Receive Date: 20171128
  Receipt Date: 20180309
  Transmission Date: 20180508
  Serious: Yes (Life-Threatening, Other)
  Sender: FDA-Public Use
  Company Number: AT-PFIZER INC-2017508315

PATIENT
  Age: 14 Year
  Sex: Male

DRUGS (3)
  1. ETOPOSIDE. [Suspect]
     Active Substance: ETOPOSIDE
     Dosage: DAILY INTRAVENTRICULAR OVER 4 DAYS (DAYS -8 TO -5)
     Route: 016
  2. CARBOPLATIN. [Suspect]
     Active Substance: CARBOPLATIN
     Indication: GERM CELL CANCER
     Dosage: 500 MG/M2, CYCLIC (PER DAY HIGH-DOSE)
  3. ETOPOSIDE. [Suspect]
     Active Substance: ETOPOSIDE
     Indication: GERM CELL CANCER
     Dosage: 250 MG/M2, CYCLIC PER DAY

REACTIONS (4)
  - Venoocclusive liver disease [Recovered/Resolved]
  - Cholestasis [Recovered/Resolved]
  - Toxicity to various agents [Recovered/Resolved]
  - Product use in unapproved indication [Unknown]
